FAERS Safety Report 8476632-0 (Version None)
Quarter: 2012Q2

REPORT INFORMATION
  Report Type: 
  Country: None (occurrence: None)
  Receive Date: 20120628
  Receipt Date: 20120622
  Transmission Date: 20120825
  Serious: Yes (Other)
  Sender: FDA-Public Use
  Company Number: JP-PFIZER INC-2012127592

PATIENT
  Age: 85 Year
  Sex: Male

DRUGS (1)
  1. LYRICA [Suspect]
     Dosage: 75 MG, 1X/DAY
     Route: 048
     Dates: start: 20110201

REACTIONS (5)
  - HYPOGLYCAEMIA [None]
  - CONFUSIONAL STATE [None]
  - AGGRESSION [None]
  - SALIVARY HYPERSECRETION [None]
  - VISION BLURRED [None]
